FAERS Safety Report 13563124 (Version 1)
Quarter: 2017Q2

REPORT INFORMATION
  Report Type: Spontaneous
  Country: US (occurrence: US)
  Receive Date: 20170518
  Receipt Date: 20170518
  Transmission Date: 20170830
  Serious: Yes (Hospitalization)
  Sender: FDA-Public Use
  Company Number: None

PATIENT
  Sex: Male

DRUGS (2)
  1. DAPTOMYCIN 500MG [Suspect]
     Active Substance: DAPTOMYCIN
     Indication: URINARY TRACT INFECTION
     Dosage: 850MG Q24H IV
     Route: 042
     Dates: start: 20170508
  2. DAPTOMYCIN 500MG [Suspect]
     Active Substance: DAPTOMYCIN
     Indication: ENTEROCOCCAL INFECTION
     Dosage: 850MG Q24H IV
     Route: 042
     Dates: start: 20170508

REACTIONS (4)
  - Blood creatine phosphokinase increased [None]
  - Muscular weakness [None]
  - Pain [None]
  - Grip strength decreased [None]

NARRATIVE: CASE EVENT DATE: 20170512
